FAERS Safety Report 4557698-7 (Version None)
Quarter: 2005Q1

REPORT INFORMATION
  Report Type: 
  Country: None (occurrence: None)
  Receive Date: 20050103
  Receipt Date: 20040809
  Transmission Date: 20050727
  Serious: Yes (Other)
  Sender: FDA-Public Use
  Company Number: 2004UW16860

PATIENT
  Age: 75 Year
  Sex: Female
  Weight: 50.8029 kg

DRUGS (7)
  1. CRESTOR [Suspect]
     Indication: BLOOD CHOLESTEROL INCREASED
     Dosage: 10 MG QD PO
     Route: 048
  2. INDERAL [Concomitant]
  3. PROCARDIA [Concomitant]
  4. POTASSIUM CHLORIDE [Concomitant]
  5. XANAX [Concomitant]
  6. TOFRANIL [Concomitant]
  7. ASPIRIN [Concomitant]

REACTIONS (2)
  - PROTEIN URINE [None]
  - VISUAL ACUITY REDUCED [None]
